FAERS Safety Report 18067049 (Version 4)
Quarter: 2021Q1

REPORT INFORMATION
  Report Type: Spontaneous
  Country: NL (occurrence: NL)
  Receive Date: 20200724
  Receipt Date: 20210331
  Transmission Date: 20210419
  Serious: Yes (Disabling, Other)
  Sender: FDA-Public Use
  Company Number: NL-009507513-2007NLD008520

PATIENT
  Age: 13 Year
  Sex: Female

DRUGS (6)
  1. CASPOFUNGIN ACETATE. [Suspect]
     Active Substance: CASPOFUNGIN ACETATE
     Indication: CEREBRAL ASPERGILLOSIS
     Dosage: 1 MILLIGRAM, QD. FROM DAY 13 OF INITIAL TREATMENT.
  2. CASPOFUNGIN ACETATE. [Suspect]
     Active Substance: CASPOFUNGIN ACETATE
     Dosage: 0.5 MILLIGRAM, TIW
  3. AMPHOTERICIN B (+) CHOLESTEROL (+) DISTEAROYLPHOSPHATIDYLGLYCEROL (+) [Suspect]
     Active Substance: AMPHOTERICIN B\CHOLESTEROL
     Indication: CEREBRAL ASPERGILLOSIS
     Dosage: 1 MILLIGRAM, QW. FROM DAY 24 UNTIL DAY 201.
  4. CASPOFUNGIN ACETATE. [Suspect]
     Active Substance: CASPOFUNGIN ACETATE
     Dosage: 1 MILLIGRAM, TIW
  5. CASPOFUNGIN ACETATE. [Suspect]
     Active Substance: CASPOFUNGIN ACETATE
     Indication: BRONCHOPULMONARY ASPERGILLOSIS
     Dosage: 70 MILLIGRAM, QD, FROM DAY 10 OF INITIAL TREATMENT, UNTIL DAY 201.
     Route: 016
  6. AMPHOTERICIN B (+) CHOLESTEROL (+) DISTEAROYLPHOSPHATIDYLGLYCEROL (+) [Suspect]
     Active Substance: AMPHOTERICIN B\CHOLESTEROL
     Indication: BRONCHOPULMONARY ASPERGILLOSIS
     Dosage: 6 MILLIGRAM/KILOGRAM, FROM DAY 0 UNTIL DAY 201
     Route: 042

REACTIONS (5)
  - Epilepsy [Unknown]
  - Product use issue [Unknown]
  - Headache [Recovered/Resolved]
  - Frontotemporal dementia [Unknown]
  - Muscle spasticity [Unknown]
